FAERS Safety Report 15494409 (Version 3)
Quarter: 2019Q1

REPORT INFORMATION
  Report Type: Spontaneous
  Country: US (occurrence: US)
  Receive Date: 20181012
  Receipt Date: 20190128
  Transmission Date: 20190417
  Serious: No
  Sender: FDA-Public Use
  Company Number: US-SA-2018SA283114

PATIENT
  Age: 70 Year
  Sex: Female

DRUGS (4)
  1. ATIVAN [Concomitant]
     Active Substance: LORAZEPAM
  2. RISPERIDONE. [Concomitant]
     Active Substance: RISPERIDONE
  3. PRALUENT [Suspect]
     Active Substance: ALIROCUMAB
     Indication: HYPERLIPIDAEMIA
     Dosage: 75 MG, QOW
     Route: 058
     Dates: start: 20180814
  4. GABAPENTIN. [Concomitant]
     Active Substance: GABAPENTIN

REACTIONS (5)
  - Anxiety [Unknown]
  - Influenza [Unknown]
  - Diarrhoea [Unknown]
  - Vomiting [Unknown]
  - Nervousness [Unknown]

NARRATIVE: CASE EVENT DATE: 2018
